FAERS Safety Report 8785083 (Version 1)
Quarter: 2012Q4

REPORT INFORMATION
  Report Type: 
  Country: US (occurrence: US)
  Receive Date: 20120914
  Receipt Date: 20120914
  Transmission Date: 20130627
  Serious: Yes (Hospitalization, Other)
  Sender: FDA-Public Use
  Company Number: US-PURDUE-USA-2012-0092807

PATIENT
  Age: 80 Year
  Sex: Female

DRUGS (3)
  1. BUTRANS [Suspect]
     Indication: BACK PAIN
     Dosage: 5 mcg/hr, daily
     Route: 062
     Dates: start: 20120905
  2. SENNA PLUS                         /00142201/ [Concomitant]
     Indication: CONSTIPATION
     Dosage: 1 Capsl, bid
     Dates: start: 20120905
  3. GABAPENTIN [Concomitant]
     Indication: NEURALGIA
     Dosage: 300 mg, bid

REACTIONS (6)
  - Cerebrovascular accident [Not Recovered/Not Resolved]
  - Blindness transient [Not Recovered/Not Resolved]
  - Speech disorder [Not Recovered/Not Resolved]
  - Headache [Not Recovered/Not Resolved]
  - Nausea [Not Recovered/Not Resolved]
  - Dizziness [Not Recovered/Not Resolved]
